FAERS Safety Report 11168035 (Version 1)
Quarter: 2015Q2

REPORT INFORMATION
  Report Type: Spontaneous
  Country: US (occurrence: US)
  Receive Date: 20150605
  Receipt Date: 20150605
  Transmission Date: 20150821
  Serious: Yes (Hospitalization)
  Sender: FDA-Public Use
  Company Number: US-INCYTE CORPORATION-2015IN002445

PATIENT
  Age: 73 Year
  Sex: Female

DRUGS (11)
  1. JAKAFI [Suspect]
     Active Substance: RUXOLITINIB
     Indication: MYELOFIBROSIS
     Dosage: 15 MG, ON THURSDAYS
     Dates: start: 2012
  2. LEVOTHYROXINE [Concomitant]
     Active Substance: LEVOTHYROXINE
  3. PLAVIX [Concomitant]
     Active Substance: CLOPIDOGREL BISULFATE
  4. LIPITOR [Concomitant]
     Active Substance: ATORVASTATIN CALCIUM
  5. THEOPHYLLINE [Concomitant]
     Active Substance: THEOPHYLLINE ANHYDROUS
  6. TRAMADOL [Concomitant]
     Active Substance: TRAMADOL
  7. ASPIRIN. [Concomitant]
     Active Substance: ASPIRIN
  8. CYMBALTA [Concomitant]
     Active Substance: DULOXETINE HYDROCHLORIDE
  9. VICODIN [Concomitant]
     Active Substance: ACETAMINOPHEN\HYDROCODONE BITARTRATE
     Indication: BREAKTHROUGH PAIN
     Dosage: PRN
  10. DIGOXIN. [Concomitant]
     Active Substance: DIGOXIN
  11. SECTRAL [Concomitant]
     Active Substance: ACEBUTOLOL HYDROCHLORIDE

REACTIONS (1)
  - Arteriosclerosis [Recovered/Resolved]

NARRATIVE: CASE EVENT DATE: 20150515
